FAERS Safety Report 7140943-1 (Version None)
Quarter: 2010Q4

REPORT INFORMATION
  Report Type: 
  Country: None (occurrence: None)
  Receive Date: 20101201
  Receipt Date: 20101201
  Transmission Date: 20110411
  Serious: Yes (Life-Threatening)
  Sender: FDA-Public Use
  Company Number: None

PATIENT
  Age: 63 Year
  Sex: Female

DRUGS (1)
  1. FENTANYL-100 [Suspect]
     Dosage: 100 MILLIGRAMS ONCE A YEAR APPLIED TO SKIN YEARS
     Route: 061

REACTIONS (3)
  - ANAPHYLACTIC REACTION [None]
  - HYPERSENSITIVITY [None]
  - PRODUCT LABEL ISSUE [None]
